FAERS Safety Report 20534854 (Version 5)
Quarter: 2023Q1

REPORT INFORMATION
  Report Type: Spontaneous
  Country: JP (occurrence: JP)
  Receive Date: 20220302
  Receipt Date: 20230310
  Transmission Date: 20230417
  Serious: Yes (Death, Hospitalization, Other)
  Sender: FDA-Public Use
  Company Number: JP-AMGEN-JPNSP2022036254

PATIENT
  Age: 87 Year
  Sex: Male

DRUGS (6)
  1. EVENITY [Suspect]
     Active Substance: ROMOSOZUMAB-AQQG
     Indication: Osteoporosis
     Dosage: 210 MILLIGRAM, QMO
     Route: 058
     Dates: start: 20200803, end: 20210414
  2. REFLEX [Concomitant]
     Active Substance: MIRTAZAPINE
     Dosage: 3 MILLIGRAM
  3. MAGNESIUM OXIDE [Concomitant]
     Active Substance: MAGNESIUM OXIDE
     Dosage: 330 MILLIGRAMX2
  4. MEMANTINE HYDROCHLORIDE [Concomitant]
     Active Substance: MEMANTINE HYDROCHLORIDE
     Dosage: 10 MILLIGRAMX1
  5. RILMAZAFONE HYDROCHLORIDE [Concomitant]
     Active Substance: RILMAZAFONE HYDROCHLORIDE
     Dosage: 1 MILLIGRAMX1.5
  6. LOXOPROFEN SODIUM [Concomitant]
     Active Substance: LOXOPROFEN SODIUM
     Dosage: UNK, AS NECESSARY

REACTIONS (7)
  - Dementia Alzheimer^s type [Fatal]
  - Pneumonia aspiration [Fatal]
  - Septic shock [Fatal]
  - Fall [Unknown]
  - Subdural haematoma [Unknown]
  - Atrial fibrillation [Unknown]
  - Ischaemic cerebral infarction [Fatal]

NARRATIVE: CASE EVENT DATE: 20201101
